FAERS Safety Report 14261708 (Version 1)
Quarter: 2017Q4

REPORT INFORMATION
  Report Type: Spontaneous
  Country: US (occurrence: US)
  Receive Date: 20171208
  Receipt Date: 20171208
  Transmission Date: 20180321
  Serious: No
  Sender: FDA-Public Use
  Company Number: US-CIPLA LTD.-2017US04094

PATIENT

DRUGS (4)
  1. OMEGA3 [Concomitant]
     Indication: SUPPLEMENTATION THERAPY
     Dosage: UNK
     Route: 065
  2. GABAPENTIN. [Suspect]
     Active Substance: GABAPENTIN
     Indication: NEURALGIA
     Dosage: 800 MG, BID (CAMBER DISTRIBUTED)
     Route: 048
  3. EYELID WASH [Concomitant]
     Indication: DRY EYE
     Dosage: UNK
     Route: 065
  4. GABAPENTIN. [Suspect]
     Active Substance: GABAPENTIN
     Dosage: 800 MG, AS 800MG IN THE MORNING AND 1600MG AT NIGHT (CIPLA DISTRIBUTED)
     Route: 048
     Dates: start: 20170301

REACTIONS (8)
  - Dyspepsia [Not Recovered/Not Resolved]
  - Product taste abnormal [Unknown]
  - Drug dose omission [Unknown]
  - Lethargy [Not Recovered/Not Resolved]
  - Somnolence [Not Recovered/Not Resolved]
  - Product substitution issue [Unknown]
  - Toxicity to various agents [Not Recovered/Not Resolved]
  - Abdominal pain upper [Not Recovered/Not Resolved]

NARRATIVE: CASE EVENT DATE: 20170301
